FAERS Safety Report 24422431 (Version 1)
Quarter: 2024Q4

REPORT INFORMATION
  Report Type: Other
  Country: IN (occurrence: IN)
  Receive Date: 20241010
  Receipt Date: 20241010
  Transmission Date: 20250114
  Serious: Yes (Death, Hospitalization, Other)
  Sender: BRECKENRIDGE
  Company Number: IN-Breckenridge Pharmaceutical, Inc.-2162754

PATIENT
  Sex: Male

DRUGS (2)
  1. TERBINAFINE [Suspect]
     Active Substance: TERBINAFINE\TERBINAFINE HYDROCHLORIDE
     Indication: Fungal infection
  2. ITRACONAZOLE [Suspect]
     Active Substance: ITRACONAZOLE

REACTIONS (3)
  - Cutaneous vasculitis [Fatal]
  - Death [Fatal]
  - Multiple organ dysfunction syndrome [Fatal]
